FAERS Safety Report 14280403 (Version 2)
Quarter: 2018Q1

REPORT INFORMATION
  Report Type: Report from Study
  Country: None (occurrence: IE)
  Receive Date: 20171213
  Receipt Date: 20180212
  Transmission Date: 20180508
  Serious: Yes (Hospitalization)
  Sender: FDA-Public Use
  Company Number: IE-ABBVIE-17K-229-2187761-00

PATIENT
  Age: 81 Year
  Sex: Male

DRUGS (2)
  1. HUMIRA [Suspect]
     Active Substance: ADALIMUMAB
     Indication: COLITIS ULCERATIVE
     Route: 058
     Dates: start: 20171124, end: 20171124
  2. HUMIRA [Suspect]
     Active Substance: ADALIMUMAB
     Route: 058
     Dates: start: 2017, end: 2017

REACTIONS (9)
  - Nosocomial infection [Unknown]
  - Pneumonia [Unknown]
  - Malaise [Unknown]
  - Fungal infection [Unknown]
  - Lower respiratory tract infection [Unknown]
  - Blood count abnormal [Unknown]
  - Gastrointestinal inflammation [Unknown]
  - Blood pressure fluctuation [Unknown]
  - Diarrhoea [Unknown]

NARRATIVE: CASE EVENT DATE: 2017
